FAERS Safety Report 10242206 (Version 4)
Quarter: 2014Q4

REPORT INFORMATION
  Report Type: Spontaneous
  Country: DE (occurrence: DE)
  Receive Date: 20140617
  Receipt Date: 20141002
  Transmission Date: 20150528
  Serious: Yes (Life-Threatening, Hospitalization)
  Sender: FDA-Public Use
  Company Number: DE-JNJFOC-20140608725

PATIENT
  Sex: Female

DRUGS (4)
  1. SOVALDI [Suspect]
     Active Substance: SOFOSBUVIR
     Indication: CHRONIC HEPATITIS C
     Route: 065
     Dates: start: 20140528
  2. TRAMAL [Interacting]
     Active Substance: TRAMADOL
     Indication: PAIN
     Dosage: 1-0-1, DOSE REDUCED
     Route: 065
  3. OLYSIO [Suspect]
     Active Substance: SIMEPREVIR
     Indication: CHRONIC HEPATITIS C
     Route: 048
     Dates: start: 20140528, end: 20140625
  4. TRAMAL [Interacting]
     Active Substance: TRAMADOL
     Indication: PAIN
     Route: 065

REACTIONS (5)
  - Electrocardiogram QT prolonged [Not Recovered/Not Resolved]
  - Psychomotor retardation [Not Recovered/Not Resolved]
  - Drug interaction [Unknown]
  - Hypokalaemia [Not Recovered/Not Resolved]
  - Somnolence [Not Recovered/Not Resolved]
